FAERS Safety Report 9695819 (Version 3)
Quarter: 2014Q2

REPORT INFORMATION
  Report Type: Spontaneous
  Country: FR (occurrence: FR)
  Receive Date: 20131119
  Receipt Date: 20140429
  Transmission Date: 20141212
  Serious: Yes (Life-Threatening, Hospitalization, Other)
  Sender: FDA-Public Use
  Company Number: FR-PFIZER INC-2013326211

PATIENT
  Age: 11 Year
  Sex: Male

DRUGS (7)
  1. ADVIL [Suspect]
     Indication: INFLUENZA
     Dosage: AS NEEDED
     Route: 048
     Dates: start: 2012
  2. ADVIL [Suspect]
     Indication: HEADACHE
  3. ADVIL [Suspect]
     Indication: SELF-MEDICATION
  4. ADVIL [Suspect]
     Indication: SINUSITIS
  5. PYOSTACINE [Concomitant]
     Indication: SINUSITIS
     Dosage: 500 MG/KG, DAILY FOR 10 DAYS
     Route: 048
  6. CELESTENE [Concomitant]
     Indication: SINUSITIS
     Dosage: 0.1 MG/KG, DAILY
     Route: 048
  7. NASACORT [Concomitant]
     Indication: SINUSITIS
     Dosage: ONE SPRAY PER NOSTRIL FOR 10 DAYS
     Route: 045

REACTIONS (7)
  - Sinusitis [Recovered/Resolved]
  - Brain empyema [Recovered/Resolved]
  - Headache [Recovered/Resolved]
  - Eyelid oedema [Recovered/Resolved]
  - Pyrexia [Recovered/Resolved]
  - Brain empyema [Unknown]
  - Off label use [Unknown]
